FAERS Safety Report 4299518-4 (Version None)
Quarter: 2004Q1

REPORT INFORMATION
  Report Type: 
  Country: None (occurrence: None)
  Receive Date: 20040217
  Receipt Date: 20040217
  Transmission Date: 20041129
  Serious: Yes (Other)
  Sender: FDA-Public Use
  Company Number: None

PATIENT
  Age: 46 Year
  Sex: Female
  Weight: 45.3597 kg

DRUGS (1)
  1. ZICAM NASAL GEL [Suspect]
     Dosage: AS DIRECT

REACTIONS (2)
  - NASOPHARYNGITIS [None]
  - SINUSITIS [None]
